FAERS Safety Report 5271801-5 (Version None)
Quarter: 2007Q1

REPORT INFORMATION
  Report Type: 
  Country: None (occurrence: None)
  Receive Date: 20070316
  Receipt Date: 20070228
  Transmission Date: 20070707
  Serious: Yes (Other)
  Sender: FDA-Public Use
  Company Number: 2007JP000956

PATIENT
  Age: 48 Year
  Sex: Male

DRUGS (2)
  1. PROGRAF [Suspect]
     Indication: STEM CELL TRANSPLANT
  2. MYCOPHENOLATE MOFETIL [Concomitant]

REACTIONS (5)
  - APLASIA PURE RED CELL [None]
  - BONE MARROW FAILURE [None]
  - HYPERPLASIA [None]
  - PANCYTOPENIA [None]
  - TRACE ELEMENT DEFICIENCY [None]
